FAERS Safety Report 10858223 (Version 2)
Quarter: 2015Q1

REPORT INFORMATION
  Report Type: Other
  Country: GB (occurrence: GB)
  Receive Date: 20150223
  Receipt Date: 20150224
  Transmission Date: 20150721
  Serious: Yes (Other)
  Sender: FDA-Public Use
  Company Number: GB-MYLANLABS-2015M1004197

PATIENT

DRUGS (3)
  1. TEVA UK ANASTROZOLE [Concomitant]
     Active Substance: ANASTROZOLE
     Indication: BREAST CANCER
     Dosage: 1 MG, QD
     Route: 048
     Dates: start: 20120402
  2. RANITIDINE [Suspect]
     Active Substance: RANITIDINE\RANITIDINE HYDROCHLORIDE
     Dosage: 150 MG, (OCCASIONALLY AT BEDTIME AND SHOULD PERHAPS BE TAKING IT MORE FREQUENTLY AS PRESCRIBED)
     Dates: start: 20130122
  3. OMEPRAZOLE. [Concomitant]
     Active Substance: OMEPRAZOLE
     Indication: DYSPEPSIA
     Dosage: 2 DF, QD
     Dates: start: 20120604, end: 20121226

REACTIONS (7)
  - Musculoskeletal stiffness [Recovered/Resolved]
  - Joint swelling [Recovered/Resolved]
  - Muscle spasms [Recovered/Resolved]
  - Breast pain [Unknown]
  - Breast swelling [Unknown]
  - Local swelling [Unknown]
  - Nuchal rigidity [Unknown]

NARRATIVE: CASE EVENT DATE: 20130518
